FAERS Safety Report 21224050 (Version 1)
Quarter: 2022Q3

REPORT INFORMATION
  Report Type: Spontaneous
  Country: US (occurrence: US)
  Receive Date: 20220817
  Receipt Date: 20220817
  Transmission Date: 20221027
  Serious: No
  Sender: FDA-Public Use
  Company Number: US-SA-2022MK000047

PATIENT
  Age: 82 Year
  Sex: Male
  Weight: 77.180 kg

DRUGS (3)
  1. AFREZZA [Suspect]
     Active Substance: INSULIN HUMAN
     Indication: Type 2 diabetes mellitus
     Dosage: 4-12 UNITS BEFORE MEALS
  2. AFREZZA [Suspect]
     Active Substance: INSULIN HUMAN
     Dosage: 4-12 UNITS BEFORE MEALS
  3. AFREZZA [Suspect]
     Active Substance: INSULIN HUMAN
     Dosage: 4-12 UNITS BEFORE MEALS

REACTIONS (2)
  - Musculoskeletal discomfort [Recovering/Resolving]
  - Wrong technique in product usage process [Recovering/Resolving]
